FAERS Safety Report 14448118 (Version 2)
Quarter: 2018Q2

REPORT INFORMATION
  Report Type: Report from Study
  Country: None (occurrence: US)
  Receive Date: 20180126
  Receipt Date: 20180417
  Transmission Date: 20180711
  Serious: Yes (Hospitalization)
  Sender: FDA-Public Use
  Company Number: US-VIFOR (INTERNATIONAL) INC.-VIT-2018-00836

PATIENT
  Age: 84 Year
  Sex: Female
  Weight: 42.68 kg

DRUGS (1)
  1. VELTASSA [Suspect]
     Active Substance: PATIROMER
     Indication: PRODUCT USED FOR UNKNOWN INDICATION
     Dates: start: 20171212, end: 201712

REACTIONS (1)
  - Blood sodium increased [Recovered/Resolved]

NARRATIVE: CASE EVENT DATE: 201712
